FAERS Safety Report 21291790 (Version 1)
Quarter: 2022Q3

REPORT INFORMATION
  Report Type: Report from Study
  Country: US (occurrence: US)
  Receive Date: 20220903
  Receipt Date: 20220903
  Transmission Date: 20221027
  Serious: Yes (Other)
  Sender: FDA-Public Use
  Company Number: US-ABBVIE-22K-163-4524047-00

PATIENT
  Sex: Male

DRUGS (1)
  1. IMBRUVICA [Suspect]
     Active Substance: IBRUTINIB
     Indication: Chronic lymphocytic leukaemia
     Route: 048

REACTIONS (7)
  - Macular degeneration [Unknown]
  - Hernia [Unknown]
  - Contusion [Unknown]
  - COVID-19 [Recovered/Resolved]
  - Palpitations [Recovered/Resolved]
  - Pneumonia [Recovered/Resolved]
  - Visual impairment [Unknown]
